FAERS Safety Report 9717088 (Version 2)
Quarter: 2013Q4

REPORT INFORMATION
  Report Type: Spontaneous
  Country: US (occurrence: US)
  Receive Date: 20131127
  Receipt Date: 20131127
  Transmission Date: 20140711
  Serious: No
  Sender: FDA-Public Use
  Company Number: US-GILEAD-2009-0020740

PATIENT
  Sex: Female

DRUGS (18)
  1. LETAIRIS [Suspect]
     Indication: PULMONARY ARTERIAL HYPERTENSION
     Route: 048
     Dates: start: 20070919
  2. REVATIO [Concomitant]
  3. NORVASC [Concomitant]
  4. ZYVOX [Concomitant]
  5. QUESTRAN [Concomitant]
  6. NEXIUM [Concomitant]
  7. VANCOCIN [Concomitant]
  8. LEVAQUIN [Concomitant]
  9. SALAGEN [Concomitant]
  10. BONIVA [Concomitant]
  11. GLUCOSAMINE [Concomitant]
  12. VITAMIN B-6 [Concomitant]
  13. MULTIVITAMIN [Concomitant]
  14. VITAMIN B-12 [Concomitant]
  15. FISH OIL [Concomitant]
  16. VITAMIN C [Concomitant]
  17. IRON [Concomitant]
  18. VITAMIN D [Concomitant]

REACTIONS (2)
  - Eye haemorrhage [Unknown]
  - Epistaxis [Unknown]
